FAERS Safety Report 9788430 (Version 2)
Quarter: 2013Q4

REPORT INFORMATION
  Report Type: Spontaneous
  Country: ES (occurrence: ES)
  Receive Date: 20131230
  Receipt Date: 20131230
  Transmission Date: 20140711
  Serious: Yes (Other)
  Sender: FDA-Public Use
  Company Number: ES-PFIZER INC-2013343560

PATIENT
  Sex: 0

DRUGS (1)
  1. LINEZOLID [Suspect]

REACTIONS (1)
  - Neuroleptic malignant syndrome [Unknown]
